FAERS Safety Report 24889618 (Version 1)
Quarter: 2025Q1

REPORT INFORMATION
  Report Type: Spontaneous
  Country: EG (occurrence: EG)
  Receive Date: 20250127
  Receipt Date: 20250127
  Transmission Date: 20250409
  Serious: Yes (Hospitalization, Other)
  Sender: HIKMA
  Company Number: EG-HIKMA PHARMACEUTICALS-EG-H14001-25-00642

PATIENT
  Age: 36 Year
  Sex: Female
  Weight: 77 kg

DRUGS (3)
  1. CISPLATIN [Suspect]
     Active Substance: CISPLATIN
     Indication: Small cell lung cancer
     Dosage: 100 MILLIGRAM, EVERY 21 DAY
     Route: 041
     Dates: start: 20240921
  2. PACLITAXEL [Suspect]
     Active Substance: PACLITAXEL
     Indication: Small cell lung cancer
     Dosage: 108 MILLIGRAM, QD
     Route: 041
     Dates: start: 20240921
  3. PACLITAXEL [Suspect]
     Active Substance: PACLITAXEL
     Dosage: 108 MILLIGRAM, QD, 5TH DOSE
     Route: 041
     Dates: start: 20241106

REACTIONS (7)
  - Leukopenia [Recovered/Resolved]
  - Neutropenia [Recovered/Resolved]
  - Pyrexia [Recovered/Resolved]
  - Normochromic normocytic anaemia [Recovered/Resolved]
  - Acute kidney injury [Recovered/Resolved]
  - Dehydration [Recovered/Resolved]
  - Hypokalaemia [Recovered/Resolved]

NARRATIVE: CASE EVENT DATE: 20241021
